FAERS Safety Report 18635876 (Version 3)
Quarter: 2021Q1

REPORT INFORMATION
  Report Type: Report from Study
  Country: HU (occurrence: HU)
  Receive Date: 20201218
  Receipt Date: 20210223
  Transmission Date: 20210419
  Serious: Yes (Death, Hospitalization, Other)
  Sender: FDA-Public Use
  Company Number: NVSC2020HU336148

PATIENT
  Age: 78 Year
  Sex: Male

DRUGS (1)
  1. ULTIBRO BREEZHALER [Suspect]
     Active Substance: GLYCOPYRRONIUM\INDACATEROL
     Indication: CHRONIC OBSTRUCTIVE PULMONARY DISEASE
     Dosage: UNK (1X1 IN THE MORNING)
     Route: 065
     Dates: start: 20201106

REACTIONS (9)
  - Dementia [Unknown]
  - Pneumonia viral [Fatal]
  - Blood sodium increased [Unknown]
  - Intellectual disability [Unknown]
  - COVID-19 [Fatal]
  - Panic disorder [Unknown]
  - Respiratory failure [Fatal]
  - Asthenia [Fatal]
  - Glomerular filtration rate decreased [Unknown]

NARRATIVE: CASE EVENT DATE: 202012
